FAERS Safety Report 8296204-0 (Version None)
Quarter: 2012Q2

REPORT INFORMATION
  Report Type: 
  Country: None (occurrence: None)
  Receive Date: 20120418
  Receipt Date: 20120409
  Transmission Date: 20120825
  Serious: Yes (Hospitalization)
  Sender: FDA-Public Use
  Company Number: US-ELI_LILLY_AND_COMPANY-US201203003872

PATIENT
  Sex: Female
  Weight: 68.345 kg

DRUGS (2)
  1. HUMALOG [Suspect]
     Indication: DIABETES MELLITUS
     Dosage: UNK, PRN
  2. LANTUS [Concomitant]
     Dosage: UNK

REACTIONS (3)
  - DYSPNOEA [None]
  - NERVOUSNESS [None]
  - LUNG DISORDER [None]
